FAERS Safety Report 8108564-1 (Version None)
Quarter: 2012Q1

REPORT INFORMATION
  Report Type: 
  Country: None (occurrence: None)
  Receive Date: 20120202
  Receipt Date: 20120112
  Transmission Date: 20120608
  Serious: No
  Sender: FDA-Public Use
  Company Number: US-AMGEN-USASP2012002425

PATIENT
  Age: 25 Year
  Sex: Female

DRUGS (2)
  1. ENBREL [Suspect]
     Indication: RHEUMATOID ARTHRITIS
     Dosage: 50 MG, QWK
     Dates: start: 20110630, end: 20111201
  2. METHOTREXATE [Concomitant]
     Dosage: UNK
     Dates: start: 20110201

REACTIONS (3)
  - RHEUMATOID ARTHRITIS [None]
  - WEIGHT DECREASED [None]
  - NAUSEA [None]
